FAERS Safety Report 5413575-0 (Version None)
Quarter: 2007Q3

REPORT INFORMATION
  Report Type: 
  Country: None (occurrence: None)
  Receive Date: 20070810
  Receipt Date: 20070801
  Transmission Date: 20080115
  Serious: Yes (Hospitalization)
  Sender: FDA-Public Use
  Company Number: E3810-01139-SPO-US

PATIENT
  Age: 55 Year
  Sex: Female

DRUGS (8)
  1. ACIPHEX [Suspect]
     Indication: MUSCLE SPASMS
     Route: 048
     Dates: start: 20020101
  2. COUMADIN [Concomitant]
  3. AMIODANONE (AMIODARONE) [Concomitant]
  4. THYRIDOZINE [Concomitant]
  5. PHENOBARBITAL TAB [Concomitant]
  6. PAXIL [Concomitant]
  7. TOPRAL (SULTOPRIDE) [Concomitant]
  8. LIPITOR [Concomitant]

REACTIONS (1)
  - ATRIAL FIBRILLATION [None]
